FAERS Safety Report 5351910-2 (Version None)
Quarter: 2007Q2

REPORT INFORMATION
  Report Type: 
  Country: None (occurrence: None)
  Receive Date: 20070609
  Receipt Date: 20070531
  Transmission Date: 20071010
  Serious: Yes (Other)
  Sender: FDA-Public Use
  Company Number: CA-ABBOTT-07P-028-0368867-00

PATIENT
  Sex: Female
  Weight: 62 kg

DRUGS (1)
  1. MAVIK [Suspect]
     Indication: HYPERTENSION
     Route: 048
     Dates: start: 20070215, end: 20070326

REACTIONS (3)
  - BLOOD CREATININE ABNORMAL [None]
  - GLOMERULAR FILTRATION RATE DECREASED [None]
  - RENAL ARTERY STENOSIS [None]
